FAERS Safety Report 20712501 (Version 1)
Quarter: 2022Q2

REPORT INFORMATION
  Report Type: Spontaneous
  Country: US (occurrence: US)
  Receive Date: 20220415
  Receipt Date: 20220415
  Transmission Date: 20220721
  Serious: Yes (Other)
  Sender: FDA-Public Use
  Company Number: US-ASTELLAS-2022US013669

PATIENT
  Sex: Female

DRUGS (1)
  1. MYRBETRIQ [Suspect]
     Active Substance: MIRABEGRON
     Indication: Product used for unknown indication
     Route: 048
     Dates: start: 20210805, end: 20210805

REACTIONS (4)
  - Mouth haemorrhage [Unknown]
  - Hypersensitivity [Unknown]
  - Gingival bleeding [Unknown]
  - Swollen tongue [Unknown]
